FAERS Safety Report 10153035 (Version 2)
Quarter: 2014Q2

REPORT INFORMATION
  Report Type: Spontaneous
  Country: US (occurrence: US)
  Receive Date: 20140505
  Receipt Date: 20140509
  Transmission Date: 20141212
  Serious: Yes (Other)
  Sender: FDA-Public Use
  Company Number: US-TEVA-479223USA

PATIENT
  Age: 54 Year
  Sex: Female

DRUGS (1)
  1. RANITIDINE [Suspect]

REACTIONS (7)
  - Product tampering [Unknown]
  - Pharyngitis [Unknown]
  - Ear infection [Unknown]
  - Malaise [Unknown]
  - Nausea [Unknown]
  - Product odour abnormal [Unknown]
  - Product taste abnormal [Unknown]
